FAERS Safety Report 4545720-3 (Version None)
Quarter: 2005Q1

REPORT INFORMATION
  Report Type: 
  Country: None (occurrence: None)
  Receive Date: 20050104
  Receipt Date: 20050104
  Transmission Date: 20050727
  Serious: No
  Sender: FDA-Public Use
  Company Number: None

PATIENT
  Age: 45 Year
  Sex: Female
  Weight: 104 kg

DRUGS (9)
  1. IRON DEXTRAN [Suspect]
     Indication: HAEMOGLOBIN DECREASED
     Dosage: 25MG ONCE IV
     Route: 042
  2. IRON DEXTRAN [Suspect]
     Indication: RENAL CELL CARCINOMA STAGE UNSPECIFIED
     Dosage: 25MG ONCE IV
     Route: 042
  3. IRON DEXTRAN [Suspect]
     Indication: SURGERY
     Dosage: 25MG ONCE IV
     Route: 042
  4. DARBOPOETIN ALFA [Concomitant]
  5. FOLIC ACID [Concomitant]
  6. CYANOCOBALAMIN [Concomitant]
  7. OXYCODONE HCL [Concomitant]
  8. PROMETHAZINE [Concomitant]
  9. HYDROMORPHONE [Concomitant]

REACTIONS (5)
  - FEELING HOT [None]
  - FLUSHING [None]
  - HEART RATE INCREASED [None]
  - INFUSION RELATED REACTION [None]
  - NAUSEA [None]
